FAERS Safety Report 7887802-4 (Version None)
Quarter: 2011Q4

REPORT INFORMATION
  Report Type: 
  Country: None (occurrence: None)
  Receive Date: 20111101
  Receipt Date: 20111018
  Transmission Date: 20120403
  Serious: Yes (Hospitalization)
  Sender: FDA-Public Use
  Company Number: TCI2011A04493

PATIENT
  Age: 85 Year
  Sex: Male

DRUGS (5)
  1. SUNRYTHM (PILSICAINIDE HYDROCHLORIDE) [Concomitant]
  2. ACTOS [Suspect]
     Indication: DIABETES MELLITUS
     Dosage: 30 MG (30 MG, 1 IN 1 D), PER ORAL
     Route: 048
     Dates: end: 20110712
  3. JZOLOFT (SERTRALINE HYDROCHLORIDE) [Concomitant]
  4. AMARYL [Concomitant]
  5. CLARITIN REDITABS [Concomitant]

REACTIONS (1)
  - BLADDER CANCER [None]
